FAERS Safety Report 8447517-0 (Version None)
Quarter: 2012Q2

REPORT INFORMATION
  Report Type: 
  Country: None (occurrence: None)
  Receive Date: 20120619
  Receipt Date: 20120607
  Transmission Date: 20120825
  Serious: Yes (Hospitalization, Other)
  Sender: FDA-Public Use
  Company Number: US-ELI_LILLY_AND_COMPANY-US201105002250

PATIENT
  Sex: Female

DRUGS (17)
  1. FORTEO [Suspect]
     Dosage: 20 UG, QD
     Route: 065
     Dates: end: 20120401
  2. FORTEO [Suspect]
     Dosage: 20 UG, QD
     Dates: end: 20120401
  3. NORVASC [Concomitant]
     Dosage: 2.5 MG, QD
  4. FORTEO [Suspect]
     Indication: OSTEOPOROSIS
     Dosage: 20 UG, QD
     Route: 065
     Dates: start: 20100301, end: 20120401
  5. MIRALAX [Concomitant]
     Indication: GASTRIC DISORDER
     Dosage: UNK, QD
  6. SIMVASTATIN [Concomitant]
     Dosage: 10 MG, QD
  7. CITRACAL PLUS [Concomitant]
     Dosage: UNK, QD
  8. LASIX [Concomitant]
     Dosage: 40 MG, QD
  9. SYNTHROID [Concomitant]
     Dosage: 50 UG, QD
  10. TOPROL-XL [Concomitant]
     Dosage: 50 MG, BID
  11. COZAAR [Concomitant]
     Dosage: 50 MG, QD
  12. COUMADIN [Concomitant]
     Dosage: 2.5 MG, UNK
  13. VITAMIN D [Concomitant]
     Dosage: 2000 IU, QD
  14. AXID [Concomitant]
     Indication: DYSPEPSIA
     Dosage: 30 MG, EACH EVENING
  15. LIDODERM [Concomitant]
     Dosage: UNK, PRN
  16. MULTAQ [Concomitant]
     Dosage: 400 MG, BID
  17. TYLENOL                                 /SCH/ [Concomitant]
     Dosage: UNK, PRN

REACTIONS (7)
  - HEART RATE DECREASED [None]
  - PAIN [None]
  - ILL-DEFINED DISORDER [None]
  - GINGIVAL DISORDER [None]
  - ARTHRITIS [None]
  - CARDIAC PACEMAKER INSERTION [None]
  - BONE DENSITY DECREASED [None]
